FAERS Safety Report 7957344-6 (Version None)
Quarter: 2011Q4

REPORT INFORMATION
  Report Type: 
  Country: None (occurrence: None)
  Receive Date: 20111205
  Receipt Date: 20111125
  Transmission Date: 20120403
  Serious: Yes (Other)
  Sender: FDA-Public Use
  Company Number: PHHY2011TR103925

PATIENT
  Age: 25 Year
  Sex: Male

DRUGS (4)
  1. VINCRISTINE [Suspect]
     Dosage: 1.4 MG/M2, (ON DAY 1)
     Dates: start: 20090801, end: 20091201
  2. ETOPOSIDE [Suspect]
     Dosage: 50 MG/M2, UNK
     Dates: start: 20090801, end: 20091201
  3. RADIOTHERAPY [Concomitant]
  4. CARBOPLATIN [Suspect]
     Dosage: 375 MG/M2 (ON DAY 1)
     Dates: start: 20090801, end: 20091201

REACTIONS (6)
  - SUBARACHNOID HAEMORRHAGE [None]
  - MYELODYSPLASTIC SYNDROME [None]
  - THROMBOCYTOPENIA [None]
  - PANCYTOPENIA [None]
  - LYMPHADENOPATHY [None]
  - HAEMATOMA [None]
